FAERS Safety Report 7337806-5 (Version None)
Quarter: 2011Q1

REPORT INFORMATION
  Report Type: 
  Country: None (occurrence: None)
  Receive Date: 20110308
  Receipt Date: 20110225
  Transmission Date: 20110831
  Serious: Yes (Death, Life-Threatening, Other)
  Sender: FDA-Public Use
  Company Number: JP-ROCHE-746070

PATIENT
  Sex: Female
  Weight: 40 kg

DRUGS (5)
  1. LEVOFOLINATE [Suspect]
     Indication: COLON CANCER METASTATIC
     Route: 041
     Dates: start: 20100430, end: 20101119
  2. 5-FU [Suspect]
     Indication: COLON CANCER METASTATIC
     Route: 041
     Dates: start: 20100430, end: 20100701
  3. AVASTIN [Suspect]
     Indication: COLON CANCER METASTATIC
     Route: 041
     Dates: start: 20100430, end: 20101119
  4. ELPLAT [Suspect]
     Indication: COLON CANCER METASTATIC
     Route: 041
     Dates: start: 20100430, end: 20101119
  5. 5-FU [Suspect]
     Route: 041
     Dates: start: 20100813, end: 20101101

REACTIONS (10)
  - HYPERAMMONAEMIA [None]
  - PLATELET COUNT DECREASED [None]
  - HEPATIC FUNCTION ABNORMAL [None]
  - NEUTROPHIL COUNT DECREASED [None]
  - EPISTAXIS [None]
  - CEREBRAL HAEMORRHAGE [None]
  - BLOOD PRESSURE DECREASED [None]
  - SUBDURAL HAEMATOMA [None]
  - HYPERTENSION [None]
  - DEPRESSED LEVEL OF CONSCIOUSNESS [None]
